FAERS Safety Report 6810420-3 (Version None)
Quarter: 2010Q2

REPORT INFORMATION
  Report Type: 
  Country: None (occurrence: None)
  Receive Date: 20100630
  Receipt Date: 20100624
  Transmission Date: 20101027
  Serious: Yes (Hospitalization)
  Sender: FDA-Public Use
  Company Number: DE-EISAI INC.-E2020-06840-SPO-DE

PATIENT
  Sex: Female
  Weight: 68 kg

DRUGS (7)
  1. ARICEPT [Suspect]
     Indication: DRUG USE FOR UNKNOWN INDICATION
     Route: 048
     Dates: start: 20080601
  2. MEMANTINE [Concomitant]
     Dosage: 20 MG DAILY
     Route: 048
     Dates: start: 20080729, end: 20100301
  3. RAMIPRIL [Concomitant]
     Dosage: 10 MG DAILY
     Route: 048
  4. ASPIRIN [Concomitant]
     Dosage: 100 MG DAILY
     Route: 048
  5. CARBAMAZEPINE [Concomitant]
     Dosage: 600 MG DAILY
     Route: 048
     Dates: start: 20100101
  6. FOSAMAX [Concomitant]
     Dosage: ONCE WEEKLY
     Dates: start: 20100101
  7. KEPPRA [Concomitant]
     Dosage: 1000 MG DAILY
     Dates: start: 20091001

REACTIONS (2)
  - EPILEPSY [None]
  - HALLUCINATION [None]
